FAERS Safety Report 8577209-9 (Version None)
Quarter: 2012Q3

REPORT INFORMATION
  Report Type: 
  Country: None (occurrence: None)
  Receive Date: 20120807
  Receipt Date: 20120730
  Transmission Date: 20120928
  Serious: Yes (Other)
  Sender: FDA-Public Use
  Company Number: JP-BRISTOL-MYERS SQUIBB COMPANY-16839250

PATIENT

DRUGS (1)
  1. ABILIFY [Suspect]
     Dosage: 1 DF:ABILIFY TABS 3MG
     Route: 048

REACTIONS (2)
  - ASTHENIA [None]
  - APHAGIA [None]
